FAERS Safety Report 22785592 (Version 2)
Quarter: 2024Q3

REPORT INFORMATION
  Report Type: Spontaneous
  Country: US (occurrence: US)
  Receive Date: 20230804
  Receipt Date: 20240808
  Transmission Date: 20241017
  Serious: No
  Sender: OTSUKA
  Company Number: US-OTSUKA-2023_016664

PATIENT
  Age: 65 Year
  Sex: Female
  Weight: 65.77 kg

DRUGS (6)
  1. ABILIFY [Suspect]
     Active Substance: ARIPIPRAZOLE
     Indication: Depression
     Dosage: 2 MG, QD
     Route: 065
  2. ABILIFY [Suspect]
     Active Substance: ARIPIPRAZOLE
     Dosage: 2 MG, QD
     Route: 065
  3. ABILIFY [Suspect]
     Active Substance: ARIPIPRAZOLE
     Dosage: UNK (HALF A TABLET)
     Route: 065
  4. HERBALS\PLANTAGO INDICA WHOLE [Suspect]
     Active Substance: HERBALS\PLANTAGO INDICA WHOLE
     Indication: Product used for unknown indication
     Dosage: UNK (ONE SCOOP)
     Route: 065
  5. ZETIA [Concomitant]
     Active Substance: EZETIMIBE
     Indication: Blood cholesterol increased
     Dosage: UNK
     Route: 065
  6. BUPROPION [Concomitant]
     Active Substance: BUPROPION
     Indication: Depression
     Dosage: 300 MG, QD
     Route: 065

REACTIONS (8)
  - Nocturia [Unknown]
  - Restless legs syndrome [Unknown]
  - Depressed mood [Unknown]
  - Glycosylated haemoglobin increased [Recovering/Resolving]
  - Therapeutic response unexpected [Unknown]
  - Drug ineffective [Unknown]
  - Wrong technique in product usage process [Unknown]
  - Therapy interrupted [Unknown]

NARRATIVE: CASE EVENT DATE: 20230505
